FAERS Safety Report 4869232-2 (Version None)
Quarter: 2005Q4

REPORT INFORMATION
  Report Type: 
  Country: None (occurrence: None)
  Receive Date: 20051228
  Receipt Date: 20051228
  Transmission Date: 20060501
  Serious: Yes (Hospitalization)
  Sender: FDA-Public Use
  Company Number: None

PATIENT
  Age: 59 Year
  Sex: Male
  Weight: 67.586 kg

DRUGS (16)
  1. DOCETAXEL   80MG/2 CC [Suspect]
     Indication: NEOPLASM MALIGNANT
     Dosage: 137MG  IV  Q 21 DAYS
     Dates: start: 20051128
  2. ALLOPURINOL [Concomitant]
  3. ATENOLOL [Concomitant]
  4. AZITHROMYCIN [Concomitant]
  5. CODEINE/ACETOMINOPHEN [Concomitant]
  6. COLCHICINE [Concomitant]
  7. DUCOSATE NA [Concomitant]
  8. FELODIPINE [Concomitant]
  9. FERROUS SULFATE TAB [Concomitant]
  10. LISINOPRIL [Concomitant]
  11. NYSTATIN [Concomitant]
  12. OMEPRAZOLE [Concomitant]
  13. OXYCODONE HCL [Concomitant]
  14. PENTOXIFYLLINE [Concomitant]
  15. PROCHLOROPERAZINE [Concomitant]
  16. TRIAMCINOLONE ACETONIDE [Concomitant]

REACTIONS (8)
  - ANAEMIA [None]
  - BLOOD UREA INCREASED [None]
  - CAPILLARY LEAK SYNDROME [None]
  - CARDIAC FAILURE CONGESTIVE [None]
  - HYPERKALAEMIA [None]
  - LEUKOCYTOSIS [None]
  - SECRETION DISCHARGE [None]
  - THERAPY NON-RESPONDER [None]
